FAERS Safety Report 18365156 (Version 14)
Quarter: 2021Q3

REPORT INFORMATION
  Report Type: Report from Study
  Country: GB (occurrence: GB)
  Receive Date: 20201009
  Receipt Date: 20210901
  Transmission Date: 20211014
  Serious: Yes (Other)
  Sender: FDA-Public Use
  Company Number: NVSC2020GB265905

PATIENT
  Age: 59 Year
  Sex: Female

DRUGS (6)
  1. SANDOSTATIN LAR DEPOT [Suspect]
     Active Substance: OCTREOTIDE ACETATE
     Indication: NEUROENDOCRINE TUMOUR
     Dosage: 30 MG, Q3W (EVERY 21 DAYS)
     Route: 030
     Dates: start: 20180301
  2. SANDOSTATIN LAR DEPOT [Suspect]
     Active Substance: OCTREOTIDE ACETATE
     Dosage: 30 MG, Q3W (EVERY 21 DAYS)
     Route: 030
     Dates: start: 201803
  3. SANDOSTATIN LAR DEPOT [Suspect]
     Active Substance: OCTREOTIDE ACETATE
     Dosage: 30 MG, Q3W (EVERY 21 DAYS)
     Route: 030
     Dates: start: 201803
  4. SANDOSTATIN LAR DEPOT [Suspect]
     Active Substance: OCTREOTIDE ACETATE
     Dosage: 30 MG, Q3W  (EVERY 21 DAYS)
     Route: 030
  5. SANDOSTATIN LAR DEPOT [Suspect]
     Active Substance: OCTREOTIDE ACETATE
     Dosage: 30 MG, Q3W  (EVERY 21 DAYS)
     Route: 030
  6. SANDOSTATIN LAR DEPOT [Suspect]
     Active Substance: OCTREOTIDE ACETATE
     Dosage: 30 MG, Q3W (EVERY 21 DAYS)
     Route: 030
     Dates: start: 201803

REACTIONS (38)
  - Photopsia [Unknown]
  - Vitamin A decreased [Unknown]
  - Malaise [Unknown]
  - Anxiety [Recovering/Resolving]
  - Eczema [Recovering/Resolving]
  - Pain in extremity [Unknown]
  - Lower respiratory tract infection [Recovering/Resolving]
  - Vulvovaginal candidiasis [Recovering/Resolving]
  - Vaccination site pain [Unknown]
  - Vitamin D decreased [Unknown]
  - Blood folate decreased [Unknown]
  - Fatigue [Unknown]
  - Injection site swelling [Recovered/Resolved]
  - Pain [Recovering/Resolving]
  - Myalgia [Recovering/Resolving]
  - Haemoglobin decreased [Unknown]
  - Stoma site pain [Not Recovered/Not Resolved]
  - Vaginal haemorrhage [Not Recovered/Not Resolved]
  - Ovarian cyst [Unknown]
  - Osteoporosis [Not Recovered/Not Resolved]
  - Dyspnoea [Recovering/Resolving]
  - Vaginal hyperplasia [Unknown]
  - Blood test abnormal [Unknown]
  - Lymphadenopathy [Unknown]
  - Rash [Not Recovered/Not Resolved]
  - Needle issue [Recovered/Resolved]
  - Malignant neoplasm progression [Unknown]
  - Stoma site erythema [Unknown]
  - Pigmentation disorder [Unknown]
  - Tachycardia [Unknown]
  - Injection site mass [Unknown]
  - Neuroendocrine tumour [Unknown]
  - Palpitations [Unknown]
  - Red blood cell abnormality [Unknown]
  - Vaginal discharge [Recovering/Resolving]
  - Vaccination site mass [Unknown]
  - Gait disturbance [Unknown]
  - Inappropriate schedule of product administration [Unknown]

NARRATIVE: CASE EVENT DATE: 20200926
